FAERS Safety Report 16013252 (Version 1)
Quarter: 2019Q1

REPORT INFORMATION
  Report Type: Spontaneous
  Country: US (occurrence: US)
  Receive Date: 20190131
  Receipt Date: 20190131
  Transmission Date: 20190418
  Serious: Yes (Hospitalization)
  Sender: FDA-Public Use
  Company Number: None

PATIENT
  Age: 31 Year
  Weight: 65.77 kg

DRUGS (1)
  1. ISOVUE 300 [Suspect]
     Active Substance: IOPAMIDOL
     Indication: BREAST CANCER
     Route: 042
     Dates: start: 20190129

REACTIONS (3)
  - Sneezing [None]
  - Throat irritation [None]
  - Nasal congestion [None]

NARRATIVE: CASE EVENT DATE: 20190129
